FAERS Safety Report 7545366-9 (Version None)
Quarter: 2011Q2

REPORT INFORMATION
  Report Type: 
  Country: None (occurrence: None)
  Receive Date: 20110613
  Receipt Date: 20110613
  Transmission Date: 20111010
  Serious: Yes (Other)
  Sender: FDA-Public Use
  Company Number: None

PATIENT
  Sex: Female
  Weight: 68.9467 kg

DRUGS (1)
  1. SIMVASTATIN [Suspect]
     Indication: BLOOD CHOLESTEROL INCREASED
     Dosage: 40MG DAILY PO
     Route: 048

REACTIONS (5)
  - ASTHENIA [None]
  - MYALGIA [None]
  - MIDDLE INSOMNIA [None]
  - FATIGUE [None]
  - PAIN [None]
